FAERS Safety Report 4594845-5 (Version None)
Quarter: 2005Q1

REPORT INFORMATION
  Report Type: 
  Country: None (occurrence: None)
  Receive Date: 20050223
  Receipt Date: 20050211
  Transmission Date: 20050727
  Serious: Yes (Death)
  Sender: FDA-Public Use
  Company Number: B0371257A

PATIENT
  Sex: 0

DRUGS (6)
  1. ALKERAN (MALPHALAN) [Suspect]
     Indication: HODGKIN'S DISEASE
     Dosage: 140 MG/M2
  2. CARMUSTINE [Suspect]
     Indication: HODGKIN'S DISEASE
     Dosage: 300 MG/M2
  3. ETOPOSIDE [Suspect]
     Indication: HODGKIN'S DISEASE
     Dosage: 150 MG/M2 TWICE PER DAY
  4. CYTARABINE [Suspect]
     Indication: HODGKIN'S DISEASE
     Dosage: 200 MG/M2/TWICE PER DAY
  5. STEM CELL TRANSPLANT [Concomitant]
  6. GRANULOCYTE COL. STIM. FACT [Concomitant]

REACTIONS (2)
  - CANDIDA SEPSIS [None]
  - NEUTROPENIA [None]
